FAERS Safety Report 9362981 (Version 47)
Quarter: 2017Q1

REPORT INFORMATION
  Report Type: Report from Study
  Country: CA (occurrence: CA)
  Receive Date: 20130624
  Receipt Date: 20170303
  Transmission Date: 20170429
  Serious: Yes (Hospitalization, Other)
  Sender: FDA-Public Use
  Company Number: CA-ROCHE-1127130

PATIENT
  Age: 74 Year
  Sex: Female
  Weight: 60 kg

DRUGS (12)
  1. ACTEMRA [Suspect]
     Active Substance: TOCILIZUMAB
     Route: 042
     Dates: start: 20130425
  2. ACTEMRA [Suspect]
     Active Substance: TOCILIZUMAB
     Route: 042
     Dates: start: 20140814
  3. ACTEMRA [Suspect]
     Active Substance: TOCILIZUMAB
     Route: 042
     Dates: start: 20160811
  4. AMIODARONE [Concomitant]
     Active Substance: AMIODARONE
     Dosage: REPLACING SOTALOL
     Route: 065
  5. XARELTO [Concomitant]
     Active Substance: RIVAROXABAN
     Indication: ANTICOAGULANT THERAPY
     Route: 065
     Dates: end: 201501
  6. CRESTOR [Concomitant]
     Active Substance: ROSUVASTATIN CALCIUM
  7. SOTALOL. [Concomitant]
     Active Substance: SOTALOL
     Route: 065
     Dates: end: 201406
  8. WARFARIN [Concomitant]
     Active Substance: WARFARIN
  9. RANITIDINE. [Concomitant]
     Active Substance: RANITIDINE
  10. ACTEMRA [Suspect]
     Active Substance: TOCILIZUMAB
     Indication: RHEUMATOID ARTHRITIS
     Route: 042
     Dates: start: 20120417
  11. ACTEMRA [Suspect]
     Active Substance: TOCILIZUMAB
     Route: 042
     Dates: start: 20150630
  12. RAMIPRIL. [Concomitant]
     Active Substance: RAMIPRIL

REACTIONS (44)
  - Fall [Unknown]
  - Back pain [Unknown]
  - Cataract [Unknown]
  - Hypotension [Unknown]
  - Arthralgia [Recovering/Resolving]
  - Heart rate decreased [Unknown]
  - Tenderness [Recovered/Resolved]
  - Asthenia [Unknown]
  - Cough [Not Recovered/Not Resolved]
  - Dermal cyst [Recovering/Resolving]
  - Haemoglobin decreased [Unknown]
  - Pain in extremity [Recovering/Resolving]
  - Musculoskeletal stiffness [Not Recovered/Not Resolved]
  - Weight decreased [Unknown]
  - Body temperature decreased [Unknown]
  - Blood pressure systolic increased [Unknown]
  - Hepatic enzyme increased [Unknown]
  - Lower respiratory tract infection [Recovering/Resolving]
  - Swelling [Not Recovered/Not Resolved]
  - Joint stiffness [Unknown]
  - Skin ulcer [Unknown]
  - Muscular weakness [Unknown]
  - Oropharyngeal pain [Unknown]
  - Cellulitis [Recovered/Resolved]
  - Urticaria [Recovered/Resolved]
  - Pain [Not Recovered/Not Resolved]
  - Heart rate decreased [Unknown]
  - Laceration [Recovered/Resolved]
  - Skin discolouration [Recovered/Resolved]
  - Blood pressure increased [Unknown]
  - Erythema [Recovered/Resolved]
  - Blood pressure diastolic abnormal [Unknown]
  - Hip fracture [Recovering/Resolving]
  - Nasopharyngitis [Recovered/Resolved]
  - Body temperature decreased [Unknown]
  - Nasopharyngitis [Not Recovered/Not Resolved]
  - Renal function test abnormal [Unknown]
  - Cystitis [Recovered/Resolved]
  - Drug effect decreased [Not Recovered/Not Resolved]
  - Atrial fibrillation [Not Recovered/Not Resolved]
  - Bone fragmentation [Not Recovered/Not Resolved]
  - Blood pressure increased [Unknown]
  - Infusion related reaction [Unknown]
  - Peripheral swelling [Recovered/Resolved]

NARRATIVE: CASE EVENT DATE: 20120910
